FAERS Safety Report 5902698-5 (Version None)
Quarter: 2008Q3

REPORT INFORMATION
  Report Type: 
  Country: None (occurrence: None)
  Receive Date: 20080929
  Receipt Date: 20080929
  Transmission Date: 20090109
  Serious: Yes (Hospitalization, Disabling)
  Sender: FDA-Public Use
  Company Number: None

PATIENT
  Age: 43 Year
  Sex: Male
  Weight: 108.8633 kg

DRUGS (1)
  1. LAMOTRIGINE [Suspect]
     Indication: BIPOLAR I DISORDER
     Dosage: 1 TAB PO BID PREVIOUSLY ON LAMICTAL BRAND
     Route: 048
     Dates: start: 20080803

REACTIONS (10)
  - AMNESIA [None]
  - DYSARTHRIA [None]
  - FATIGUE [None]
  - FEELING ABNORMAL [None]
  - HEAD DISCOMFORT [None]
  - MUSCULAR WEAKNESS [None]
  - ROAD TRAFFIC ACCIDENT [None]
  - SENSATION OF HEAVINESS [None]
  - SOMNAMBULISM [None]
  - THERAPEUTIC RESPONSE UNEXPECTED WITH DRUG SUBSTITUTION [None]
